FAERS Safety Report 8532720-1 (Version None)
Quarter: 2012Q3

REPORT INFORMATION
  Report Type: 
  Country: None (occurrence: None)
  Receive Date: 20120724
  Receipt Date: 20120717
  Transmission Date: 20120928
  Serious: Yes (Other)
  Sender: FDA-Public Use
  Company Number: PHHY2012MX062906

PATIENT
  Sex: Female

DRUGS (6)
  1. ZOLEDRONOC ACID [Suspect]
     Indication: ARTHRITIS
     Dosage: 5 MG/100 ML/ YEAR
     Route: 042
     Dates: start: 20080101
  2. CLARITHROMYCIN [Concomitant]
     Dosage: 50 MG, EVERY 12 HOURS FOR 3 MONTHS.
  3. NEXIUM [Concomitant]
     Dosage: 40 MG, ONCE/SINGLE
  4. LOVAZA [Concomitant]
  5. AMOXIL [Concomitant]
     Dosage: 4 DF, (50 MG) EVERY 24 HOURS
  6. NATRIURETIC [Concomitant]

REACTIONS (6)
  - UPPER LIMB FRACTURE [None]
  - FATIGUE [None]
  - BACTERIAL INFECTION [None]
  - ASTHENIA [None]
  - FALL [None]
  - GASTROINTESTINAL HAEMORRHAGE [None]
